FAERS Safety Report 5030221-9 (Version None)
Quarter: 2006Q2

REPORT INFORMATION
  Report Type: 
  Country: None (occurrence: None)
  Receive Date: 20060614
  Receipt Date: 20060526
  Transmission Date: 20061013
  Serious: Yes (Death, Life-Threatening, Hospitalization, Other)
  Sender: FDA-Public Use
  Company Number: US200605003659

PATIENT
  Age: 86 Year
  Sex: Female

DRUGS (5)
  1. FORTEO [Suspect]
     Indication: OSTEOPOROSIS
     Dates: start: 20041101
  2. FORTEO [Concomitant]
  3. CALTRATE (CALCIUM CARBONATE) [Concomitant]
  4. CALCIUM W/VITAMIN D NOS (CALCIUM, VITAMIN D NOS) [Concomitant]
  5. FOSAMAX [Concomitant]

REACTIONS (12)
  - ASTHENIA [None]
  - CHOKING [None]
  - DYSPNOEA [None]
  - FALL [None]
  - HIP FRACTURE [None]
  - MALNUTRITION [None]
  - NOSOCOMIAL INFECTION [None]
  - OESOPHAGEAL DISORDER [None]
  - ORAL INTAKE REDUCED [None]
  - PHARYNGOLARYNGEAL PAIN [None]
  - PNEUMONIA ASPIRATION [None]
  - URINARY TRACT INFECTION [None]
